FAERS Safety Report 20904820 (Version 2)
Quarter: 2022Q2

REPORT INFORMATION
  Report Type: Report from Study
  Country: CL (occurrence: None)
  Receive Date: 20220602
  Receipt Date: 20220606
  Transmission Date: 20220721
  Serious: No
  Sender: FDA-Public Use
  Company Number: CL-Eisai Medical Research-EC-2022-116033

PATIENT
  Age: 61 Year
  Sex: Male
  Weight: 103 kg

DRUGS (14)
  1. LENVATINIB [Suspect]
     Active Substance: LENVATINIB
     Indication: Clear cell renal cell carcinoma
     Dosage: STARTING DOSE 20 MG, FLUCTUATED DOSAGE
     Route: 048
     Dates: start: 20210705, end: 20220327
  2. LENVATINIB [Suspect]
     Active Substance: LENVATINIB
     Route: 048
     Dates: start: 20220513, end: 20220513
  3. QUAVONLIMAB [Suspect]
     Active Substance: QUAVONLIMAB
     Indication: Clear cell renal cell carcinoma
     Dosage: MK-1308 25MG + PEMBROLIZUMAB 400MG
     Route: 041
     Dates: start: 20210705, end: 20220214
  4. PEMBROLIZUMAB [Suspect]
     Active Substance: PEMBROLIZUMAB
     Dosage: MK-1308 25MG + PEMBROLIZUMAB 400MG
     Route: 041
     Dates: start: 20220513, end: 20220513
  5. LOSARTAN [Concomitant]
     Active Substance: LOSARTAN
     Dates: start: 200001
  6. EUTHYROX [Concomitant]
     Active Substance: LEVOTHYROXINE SODIUM
     Dates: start: 201706
  7. CARVEDILOL [Concomitant]
     Active Substance: CARVEDILOL
     Dates: start: 202103
  8. XARELTO [Concomitant]
     Active Substance: RIVAROXABAN
     Dates: start: 202103
  9. AMLODIPINE [Concomitant]
     Active Substance: AMLODIPINE BESYLATE
     Dates: start: 20210712
  10. ACETAMINOPHEN [Concomitant]
     Active Substance: ACETAMINOPHEN
     Dates: start: 20210812
  11. LORATADINE [Concomitant]
     Active Substance: LORATADINE
     Dates: start: 20211115
  12. LOPERAMIDE [Concomitant]
     Active Substance: LOPERAMIDE
     Dates: start: 20211227
  13. PREDNISONE [Concomitant]
     Active Substance: PREDNISONE
     Dates: start: 20220512, end: 20220519
  14. DEXAMETHASONE [Concomitant]
     Active Substance: DEXAMETHASONE
     Dates: start: 20220512

REACTIONS (1)
  - Hypertension [Recovering/Resolving]

NARRATIVE: CASE EVENT DATE: 20220526
